FAERS Safety Report 17064467 (Version 2)
Quarter: 2024Q4

REPORT INFORMATION
  Report Type: Spontaneous
  Country: US (occurrence: US)
  Receive Date: 20191122
  Receipt Date: 20241226
  Transmission Date: 20250115
  Serious: No
  Sender: PFIZER
  Company Number: US-PFIZER INC-2019503572

PATIENT
  Age: 71 Year
  Sex: Female

DRUGS (1)
  1. IBRANCE [Suspect]
     Active Substance: PALBOCICLIB
     Dosage: 100 MG, CYCLIC (1 CAPSULE ONCE DAILY ON DAYS 1-21 OF A 28 DAY CYCLE. TAKE WHOLE WITH WATER AND FOOD)
     Route: 048

REACTIONS (1)
  - Neoplasm progression [Unknown]
